FAERS Safety Report 5412934-X (Version None)
Quarter: 2007Q3

REPORT INFORMATION
  Report Type: 
  Country: None (occurrence: None)
  Receive Date: 20070813
  Receipt Date: 20070808
  Transmission Date: 20080115
  Serious: Yes (Disabling)
  Sender: FDA-Public Use
  Company Number: JP-MERCK-0707USA03724

PATIENT
  Age: 47 Year
  Sex: Male

DRUGS (8)
  1. PEPCID RPD [Suspect]
     Route: 048
  2. ACECOL [Concomitant]
     Route: 065
  3. ADALAT [Concomitant]
     Route: 065
  4. CANDESARTAN CILEXETIL [Concomitant]
     Route: 065
  5. DEPAKENE [Concomitant]
     Route: 065
  6. NIVADIL [Concomitant]
     Route: 065
  7. SERMION [Concomitant]
     Route: 065
  8. RENAGEL [Concomitant]
     Route: 065

REACTIONS (1)
  - ALTERED STATE OF CONSCIOUSNESS [None]
